FAERS Safety Report 4726999-1 (Version None)
Quarter: 2005Q3

REPORT INFORMATION
  Report Type: 
  Country: None (occurrence: None)
  Receive Date: 20050728
  Receipt Date: 20050715
  Transmission Date: 20060218
  Serious: Yes (Hospitalization)
  Sender: FDA-Public Use
  Company Number: IT-JNJFOC-20050703289

PATIENT
  Age: 23 Year
  Sex: Female

DRUGS (2)
  1. REMICADE [Suspect]
     Indication: CROHN'S DISEASE
     Route: 042
     Dates: start: 20050713, end: 20050713
  2. MESALAMINE [Concomitant]
     Indication: CROHN'S DISEASE
     Route: 065

REACTIONS (3)
  - CHEST DISCOMFORT [None]
  - MALAISE [None]
  - RASH [None]
